FAERS Safety Report 13658860 (Version 2)
Quarter: 2017Q2

REPORT INFORMATION
  Report Type: Spontaneous
  Country: GB (occurrence: GB)
  Receive Date: 20170616
  Receipt Date: 20170629
  Transmission Date: 20170830
  Serious: Yes (Other)
  Sender: FDA-Public Use
  Company Number: GB-DRREDDYS-GER/UKI/17/0091381

PATIENT
  Sex: Male

DRUGS (1)
  1. CIPROFLOXACIN 500MG FILM-COATED TABLETS, DR. REDDY^S [Suspect]
     Active Substance: CIPROFLOXACIN
     Indication: URINARY TRACT INFECTION
     Route: 048

REACTIONS (8)
  - Hypokinesia [Unknown]
  - Peripheral swelling [Unknown]
  - Pain of skin [Unknown]
  - Abasia [Unknown]
  - Limb discomfort [Unknown]
  - Skin exfoliation [Unknown]
  - Pain in extremity [Unknown]
  - Tendon injury [Unknown]
